FAERS Safety Report 9109852 (Version 1)
Quarter: 2013Q1

REPORT INFORMATION
  Report Type: Spontaneous
  Country: IT (occurrence: IT)
  Receive Date: 20130222
  Receipt Date: 20130222
  Transmission Date: 20140127
  Serious: Yes (Other)
  Sender: FDA-Public Use
  Company Number: IT-JNJFOC-20130210498

PATIENT
  Age: 54 Year
  Sex: Male

DRUGS (3)
  1. REMICADE [Suspect]
     Indication: SPONDYLITIS
     Route: 042
     Dates: start: 20050401, end: 20121201
  2. REMICADE [Suspect]
     Indication: COLITIS ULCERATIVE
     Route: 042
     Dates: start: 20050401, end: 20121201
  3. MEDROL [Concomitant]
     Dosage: START DATE 2008 POSSIBLY
     Route: 048
     Dates: start: 2008

REACTIONS (1)
  - Granuloma skin [Recovered/Resolved]
